FAERS Safety Report 10082331 (Version 1)
Quarter: 2014Q2

REPORT INFORMATION
  Report Type: Spontaneous
  Country: US (occurrence: None)
  Receive Date: 20140414
  Receipt Date: 20140414
  Transmission Date: 20141212
  Serious: No
  Sender: FDA-Public Use
  Company Number: None

PATIENT
  Age: 64 Year
  Sex: Female

DRUGS (1)
  1. MIRVASO [Suspect]
     Indication: ROSACEA
     Dosage: SMALL AMOUNT?ONCE DAILY?APPLIED TO A SURGACE, SUALLY THE SKIN
     Route: 061
     Dates: start: 20140409, end: 20140412

REACTIONS (1)
  - Flushing [None]
